FAERS Safety Report 6621466 (Version 3)
Quarter: 2020Q1

REPORT INFORMATION
  Report Type: Spontaneous
  Country: IN (occurrence: IN)
  Receive Date: 20080423
  Receipt Date: 20200210
  Transmission Date: 20200409
  Serious: Yes (Death)
  Sender: FDA-Public Use
  Company Number: PHBS2008IN04184

PATIENT
  Sex: Female
  Weight: 1.2 kg

DRUGS (2)
  1. IMATINIB. [Suspect]
     Active Substance: IMATINIB MESYLATE
     Indication: CHRONIC MYELOID LEUKAEMIA
     Dosage: 400 MG, QD
     Route: 064
     Dates: start: 200306
  2. FOLIC ACID. [Concomitant]
     Active Substance: FOLIC ACID
     Indication: PRENATAL CARE
     Dosage: UNK
     Route: 064

REACTIONS (3)
  - Premature baby [Fatal]
  - Foetal exposure during pregnancy [Unknown]
  - Low birth weight baby [Fatal]

NARRATIVE: CASE EVENT DATE: 200409
